FAERS Safety Report 5508096-0 (Version None)
Quarter: 2007Q4

REPORT INFORMATION
  Report Type: 
  Country: None (occurrence: None)
  Receive Date: 20071031
  Receipt Date: 20070713
  Transmission Date: 20080405
  Serious: No
  Sender: FDA-Public Use
  Company Number: 200610345BWH

PATIENT
  Age: 77 Year
  Sex: Male

DRUGS (3)
  1. SORAFENIB [Suspect]
     Indication: METASTATIC RENAL CELL CARCINOMA
     Dosage: 400 MG, BID, ORAL
     Route: 048
     Dates: start: 20051001
  2. LANTUS [Concomitant]
  3. WARFARIN SODIUM [Concomitant]

REACTIONS (3)
  - ALOPECIA [None]
  - DIARRHOEA [None]
  - HYPERTENSION [None]
